FAERS Safety Report 25205396 (Version 4)
Quarter: 2025Q2

REPORT INFORMATION
  Report Type: Spontaneous
  Country: DE (occurrence: DE)
  Receive Date: 20250417
  Receipt Date: 20250508
  Transmission Date: 20250717
  Serious: Yes (Death, Life-Threatening, Hospitalization, Other)
  Sender: SANDOZ
  Company Number: DE-002147023-NVSC2020DE324624

PATIENT
  Sex: Female
  Weight: 70.9 kg

DRUGS (3)
  1. FULVESTRANT [Suspect]
     Active Substance: FULVESTRANT
     Indication: Breast cancer metastatic
     Dosage: 250 MG, Q2W (DAILY DOSE)
     Route: 030
     Dates: start: 20190827, end: 20201114
  2. RIBOCICLIB [Suspect]
     Active Substance: RIBOCICLIB
     Indication: Breast cancer metastatic
     Dosage: 400 MG, QD (SCHEMA 21 DAYS INTAKE, 7 DAYS PAUSE)
     Route: 048
     Dates: start: 20190828, end: 20190924
  3. RIBOCICLIB [Suspect]
     Active Substance: RIBOCICLIB
     Dosage: 600 MG, QD (SCHEMA 21 DAYS INTAKE, 7 DAYS PAUSE)
     Route: 048
     Dates: start: 20190925, end: 20201114

REACTIONS (8)
  - Metastases to bone marrow [Fatal]
  - Acute respiratory failure [Fatal]
  - Pneumonitis [Fatal]
  - Wheezing [Unknown]
  - Dyspnoea [Unknown]
  - Chest pain [Unknown]
  - Chest discomfort [Unknown]
  - Off label use [Unknown]

NARRATIVE: CASE EVENT DATE: 20201114
